FAERS Safety Report 12782352 (Version 1)
Quarter: 2016Q3

REPORT INFORMATION
  Report Type: Spontaneous
  Country: US (occurrence: US)
  Receive Date: 20160923
  Receipt Date: 20160923
  Transmission Date: 20161109
  Serious: Yes (Other)
  Sender: FDA-Public Use
  Company Number: None

PATIENT
  Age: 34 Year
  Sex: Female
  Weight: 65 kg

DRUGS (1)
  1. NALTREXONE [Suspect]
     Active Substance: NALTREXONE
     Indication: DRUG DEPENDENCE
     Route: 048
     Dates: start: 20160610, end: 20160622

REACTIONS (6)
  - Anxiety [None]
  - Flushing [None]
  - Insomnia [None]
  - Angioedema [None]
  - Skin burning sensation [None]
  - Irritability [None]

NARRATIVE: CASE EVENT DATE: 20160622
